FAERS Safety Report 13787969 (Version 1)
Quarter: 2017Q3

REPORT INFORMATION
  Report Type: Spontaneous
  Country: US (occurrence: US)
  Receive Date: 20170725
  Receipt Date: 20170725
  Transmission Date: 20171127
  Serious: No
  Sender: FDA-Public Use
  Company Number: US-JNJFOC-20170609120

PATIENT
  Age: 2 Decade
  Sex: Female

DRUGS (2)
  1. MOTRIN IB [Suspect]
     Active Substance: IBUPROFEN
     Route: 048
  2. MOTRIN IB [Suspect]
     Active Substance: IBUPROFEN
     Indication: PREMENSTRUAL PAIN
     Dosage: 2-3X PER DAY FOR ABOUT A WEEK EACH MONTH AS NEEDED
     Route: 048

REACTIONS (1)
  - Wrong technique in product usage process [Unknown]
